FAERS Safety Report 8721036 (Version 2)
Quarter: 2012Q4

REPORT INFORMATION
  Report Type: Report from Study
  Country: JP (occurrence: JP)
  Receive Date: 20120813
  Receipt Date: 20121218
  Transmission Date: 20130627
  Serious: Yes (Death, Hospitalization, Other)
  Sender: FDA-Public Use
  Company Number: PHHY2012JP064466

PATIENT
  Age: 67 Year
  Sex: Male
  Weight: 64 kg

DRUGS (11)
  1. AFINITOR [Suspect]
     Indication: PANCREATIC NEUROENDOCRINE TUMOUR
     Dosage: 5 mg, daily
     Route: 048
     Dates: start: 20120417, end: 20120719
  2. CELECOXIB [Suspect]
     Indication: PANCREATIC NEUROENDOCRINE TUMOUR
     Dosage: 100 mg, daily
     Dates: start: 20111219, end: 20120720
  3. ZYRTEC [Suspect]
     Dosage: 10 mg, daily
     Route: 048
     Dates: start: 20120507, end: 20120720
  4. SANDOSTATIN LAR [Concomitant]
     Indication: PANCREATIC NEUROENDOCRINE TUMOUR
     Dosage: UNK
     Route: 030
     Dates: start: 20090807, end: 20120618
  5. GASTER [Concomitant]
     Dosage: 20 mg, UNK
     Route: 048
     Dates: end: 20120720
  6. DAIO-KANZO-TO [Concomitant]
     Dosage: 7.5 g, UNK
     Route: 048
     Dates: start: 20111121, end: 20120720
  7. NOVORAPID [Concomitant]
     Dosage: 12 IU, UNK
     Route: 058
     Dates: end: 20120720
  8. LANTUS [Concomitant]
     Dosage: 4 IU, UNK
     Route: 058
     Dates: end: 20120720
  9. HARNAL [Concomitant]
     Dosage: 0.2 mg, UNK
     Route: 048
     Dates: start: 20100528, end: 20120720
  10. ANTEBATE [Concomitant]
     Dosage: UNK
     Route: 062
     Dates: end: 20120720
  11. ADONA [Concomitant]
     Dosage: 90 mg, UNK
     Route: 048
     Dates: start: 20090907, end: 20120720

REACTIONS (9)
  - Sepsis [Fatal]
  - Pyrexia [Unknown]
  - Tachycardia [Unknown]
  - Depressed level of consciousness [Unknown]
  - Muscular weakness [Unknown]
  - Fatigue [Unknown]
  - Renal failure [Unknown]
  - Anuria [Unknown]
  - Blood glucose increased [Unknown]
